FAERS Safety Report 22016695 (Version 1)
Quarter: 2023Q1

REPORT INFORMATION
  Report Type: Spontaneous
  Country: US (occurrence: US)
  Receive Date: 20230221
  Receipt Date: 20230221
  Transmission Date: 20230418
  Serious: Yes (Hospitalization)
  Sender: FDA-Public Use
  Company Number: US-SUNOVION-2023SUN000274AA

PATIENT
  Age: 13 Year
  Sex: Female

DRUGS (1)
  1. LATUDA [Suspect]
     Active Substance: LURASIDONE HYDROCHLORIDE
     Dosage: 80 MG, QD (2 TABLETS OF 40MG)
     Route: 048

REACTIONS (2)
  - Malaise [Unknown]
  - Mental disorder [Not Recovered/Not Resolved]
